FAERS Safety Report 7311973-1 (Version None)
Quarter: 2011Q1

REPORT INFORMATION
  Report Type: 
  Country: None (occurrence: None)
  Receive Date: 20110224
  Receipt Date: 20110221
  Transmission Date: 20110831
  Serious: Yes (Other)
  Sender: FDA-Public Use
  Company Number: DE-PFIZER INC-2011037222

PATIENT
  Age: 50 Year
  Sex: Female

DRUGS (2)
  1. LYRICA [Suspect]
     Indication: NEURALGIA
     Dosage: 25 MG/DAY
     Dates: start: 20110101, end: 20110101
  2. LYRICA [Suspect]
     Dosage: 50 MG, 2X/DAY
     Dates: start: 20110101, end: 20110201

REACTIONS (4)
  - URINARY RETENTION [None]
  - FLUSHING [None]
  - CYSTITIS [None]
  - GAIT DISTURBANCE [None]
